FAERS Safety Report 13291428 (Version 1)
Quarter: 2017Q1

REPORT INFORMATION
  Report Type: Spontaneous
  Country: PT (occurrence: PT)
  Receive Date: 20170303
  Receipt Date: 20170303
  Transmission Date: 20170428
  Serious: Yes (Life-Threatening, Hospitalization, Other)
  Sender: FDA-Public Use
  Company Number: PT-TEVA-742720ISR

PATIENT
  Age: 57 Year
  Sex: Male

DRUGS (2)
  1. DIAZEPAM. [Interacting]
     Active Substance: DIAZEPAM
     Indication: DEPRESSION
     Dosage: 5 MILLIGRAM DAILY;
     Route: 048
  2. TRAZODONE [Suspect]
     Active Substance: TRAZODONE HYDROCHLORIDE
     Indication: DEPRESSION
     Dosage: 200 MILLIGRAM DAILY;
     Route: 048

REACTIONS (3)
  - Drug interaction [Recovered/Resolved]
  - Encephalopathy [Recovered/Resolved]
  - Jaundice [Recovered/Resolved]
